FAERS Safety Report 8512997-9 (Version None)
Quarter: 2012Q3

REPORT INFORMATION
  Report Type: 
  Country: None (occurrence: None)
  Receive Date: 20120716
  Receipt Date: 20120710
  Transmission Date: 20120928
  Serious: Yes (Death, Hospitalization)
  Sender: FDA-Public Use
  Company Number: US-GILEAD-2012-0056462

PATIENT
  Sex: Female

DRUGS (2)
  1. EPOPROSTENOL SODIUM [Concomitant]
  2. LETAIRIS [Suspect]
     Indication: PRODUCT USED FOR UNKNOWN INDICATION
     Dosage: 5 MG, UNK
     Route: 048
     Dates: start: 20110831, end: 20120601

REACTIONS (8)
  - DEVICE RELATED SEPSIS [None]
  - CHILLS [None]
  - PYREXIA [None]
  - TREMOR [None]
  - BACK PAIN [None]
  - DYSPNOEA [None]
  - HEADACHE [None]
  - MALAISE [None]
